FAERS Safety Report 19280118 (Version 1)
Quarter: 2021Q2

REPORT INFORMATION
  Report Type: Spontaneous
  Country: IE (occurrence: IE)
  Receive Date: 20210520
  Receipt Date: 20210520
  Transmission Date: 20210717
  Serious: Yes (Hospitalization, Other)
  Sender: FDA-Public Use
  Company Number: IE-INVENTIA-000481

PATIENT
  Age: 3 Decade
  Sex: Female

DRUGS (2)
  1. THEOPHYLLINE [Suspect]
     Active Substance: THEOPHYLLINE ANHYDROUS
  2. LANSOPRAZOLE. [Suspect]
     Active Substance: LANSOPRAZOLE

REACTIONS (5)
  - Toxicity to various agents [Unknown]
  - Amnestic disorder [Unknown]
  - Status epilepticus [Unknown]
  - Acidosis [Unknown]
  - Intentional overdose [Unknown]
